FAERS Safety Report 5373302-2 (Version None)
Quarter: 2007Q2

REPORT INFORMATION
  Report Type: 
  Country: None (occurrence: None)
  Receive Date: 20070628
  Receipt Date: 20070619
  Transmission Date: 20071010
  Serious: Yes (Other)
  Sender: FDA-Public Use
  Company Number: CA-JNJFOC-20070604767

PATIENT
  Sex: Male
  Weight: 42 kg

DRUGS (2)
  1. REMICADE [Suspect]
     Route: 042
  2. REMICADE [Suspect]
     Indication: CROHN'S DISEASE
     Route: 042

REACTIONS (10)
  - BRADYCARDIA [None]
  - CHEST DISCOMFORT [None]
  - FAECAL INCONTINENCE [None]
  - FALL [None]
  - HYPOTENSION [None]
  - INFUSION RELATED REACTION [None]
  - UNRESPONSIVE TO STIMULI [None]
  - URINARY INCONTINENCE [None]
  - VISION BLURRED [None]
  - VOMITING [None]
